FAERS Safety Report 9142666 (Version 1)
Quarter: 2013Q1

REPORT INFORMATION
  Report Type: Spontaneous
  Country: AR (occurrence: AR)
  Receive Date: 20130306
  Receipt Date: 20130306
  Transmission Date: 20140127
  Serious: Yes (Other)
  Sender: FDA-Public Use
  Company Number: PHHY2013AR021595

PATIENT
  Sex: Female

DRUGS (2)
  1. DIOVAN [Suspect]
     Indication: HYPERTENSION
     Dosage: 1 DF (160MG), BID
     Route: 048
  2. DIOVAN [Suspect]
     Dosage: 1 DF (320MG), BID
     Route: 048
     Dates: start: 2009

REACTIONS (2)
  - Cardiac valve disease [Not Recovered/Not Resolved]
  - Incorrect dose administered [Unknown]
